FAERS Safety Report 8376468-5 (Version None)
Quarter: 2012Q1

REPORT INFORMATION
  Report Type: 
  Country: None (occurrence: None)
  Receive Date: 20120323
  Receipt Date: 20110824
  Transmission Date: 20120608
  Serious: Yes (Hospitalization)
  Sender: FDA-Public Use
  Company Number: 163-21880-11081169

PATIENT
  Age: 67 Year
  Sex: Female
  Weight: 81.6475 kg

DRUGS (10)
  1. REVLIMID [Suspect]
     Indication: CHRONIC LEUKAEMIA
     Dosage: 10 MG, DAILY X 21 DAYS EVERY 28 DAYS, PO
     Route: 048
     Dates: start: 20110628
  2. LISINOPRIL [Concomitant]
  3. ADVIR (SERETIDE MITE) [Concomitant]
  4. METFORMIN HCL [Concomitant]
  5. XANAX [Concomitant]
  6. FAMOTIDINE [Concomitant]
  7. SPIRIVA [Concomitant]
  8. LOVASTATIN [Concomitant]
  9. ALLOPURINOL [Concomitant]
  10. ALBUTEROL [Concomitant]

REACTIONS (4)
  - POLLAKIURIA [None]
  - DYSPNOEA [None]
  - BACTERAEMIA [None]
  - DYSURIA [None]
